FAERS Safety Report 7630471-9 (Version None)
Quarter: 2011Q3

REPORT INFORMATION
  Report Type: 
  Country: None (occurrence: None)
  Receive Date: 20110722
  Receipt Date: 20110720
  Transmission Date: 20111222
  Serious: Yes (Death)
  Sender: FDA-Public Use
  Company Number: US-AMGEN-USASP2011037135

PATIENT
  Sex: Male

DRUGS (3)
  1. RITUXAN [Concomitant]
  2. NPLATE [Suspect]
     Indication: IDIOPATHIC THROMBOCYTOPENIC PURPURA
     Dates: start: 20101220
  3. CORTICOSTEROIDS [Concomitant]

REACTIONS (1)
  - DEATH [None]
